FAERS Safety Report 9458076 (Version 1)
Quarter: 2013Q3

REPORT INFORMATION
  Report Type: Spontaneous
  Country: GB (occurrence: None)
  Receive Date: 20130812
  Receipt Date: 20130812
  Transmission Date: 20140515
  Serious: Yes (Life-Threatening, Hospitalization, Other)
  Sender: FDA-Public Use
  Company Number: AUR-APL-2013-06494

PATIENT
  Age: 66 Year
  Sex: Male
  Weight: 102 kg

DRUGS (5)
  1. METFORMIN [Suspect]
     Indication: PRODUCT USED FOR UNKNOWN INDICATION
     Dosage: 1500 MG (500 MG, 3 IN 1 D), ORAL
     Route: 048
     Dates: start: 20120611, end: 20130716
  2. MULTIVITAMIN (VIGRAN) [Concomitant]
  3. OMEGA-3 ACIDS (OMEGA-3 FATTY ACID) [Concomitant]
  4. VALSARTAN (VALSARTAN) [Concomitant]
  5. GARLIC OIL ESSENETIAL (ALLIUM SATIVUM) [Concomitant]

REACTIONS (4)
  - Panic attack [None]
  - Oropharyngeal pain [None]
  - Nasal polyps [None]
  - Poor quality sleep [None]
